FAERS Safety Report 23691475 (Version 1)
Quarter: 2024Q2

REPORT INFORMATION
  Report Type: Spontaneous
  Country: DE (occurrence: DE)
  Receive Date: 20240401
  Receipt Date: 20240401
  Transmission Date: 20240716
  Serious: Yes (Other)
  Sender: FDA-Public Use
  Company Number: None

PATIENT
  Sex: Male
  Weight: 80 kg

DRUGS (1)
  1. AMOXICILLIN [Suspect]
     Active Substance: AMOXICILLIN
     Indication: Bacterial infection
     Dosage: 1-1-1, TAKEN ONCE
     Route: 048
     Dates: start: 20240311

REACTIONS (7)
  - Circulatory collapse [Recovered/Resolved]
  - Fall [Recovered/Resolved]
  - Sensation of blood flow [Recovered/Resolved]
  - Asthenia [Recovered/Resolved]
  - Areflexia [Recovered/Resolved]
  - Asthenia [Recovered/Resolved]
  - Erythema [Recovered/Resolved]

NARRATIVE: CASE EVENT DATE: 20240311
